FAERS Safety Report 4768991-7 (Version None)
Quarter: 2005Q3

REPORT INFORMATION
  Report Type: 
  Country: None (occurrence: None)
  Receive Date: 20050914
  Receipt Date: 20050902
  Transmission Date: 20060218
  Serious: Yes (Hospitalization, Other)
  Sender: FDA-Public Use
  Company Number: 2005121263

PATIENT
  Age: 46 Year
  Sex: Male

DRUGS (1)
  1. LIPITOR [Suspect]
     Indication: HYPERLIPIDAEMIA

REACTIONS (6)
  - BLOOD URINE PRESENT [None]
  - C-REACTIVE PROTEIN INCREASED [None]
  - PROTEIN URINE PRESENT [None]
  - RHABDOMYOLYSIS [None]
  - TONGUE NEOPLASM [None]
  - WHITE BLOOD CELL COUNT INCREASED [None]
